FAERS Safety Report 9524994 (Version 1)
Quarter: 2013Q3

REPORT INFORMATION
  Report Type: Spontaneous
  Country: US (occurrence: None)
  Receive Date: 20130912
  Receipt Date: 20130912
  Transmission Date: 20140515
  Serious: Yes (Disabling)
  Sender: FDA-Public Use
  Company Number: None

PATIENT
  Age: 30 Year
  Sex: Male
  Weight: 106.14 kg

DRUGS (2)
  1. QUETIAPINE FUMARATE [Suspect]
     Indication: TOURETTE^S DISORDER
     Dosage: AT BEDTIMES
     Route: 048
  2. QUETIAPINE FUMARATE [Suspect]
     Indication: ANXIETY
     Dosage: AT BEDTIMES
     Route: 048

REACTIONS (7)
  - Product substitution issue [None]
  - Drug effect decreased [None]
  - Off label use [None]
  - Weight decreased [None]
  - Decreased appetite [None]
  - Product solubility abnormal [None]
  - Energy increased [None]
